FAERS Safety Report 12711709 (Version 1)
Quarter: 2016Q3

REPORT INFORMATION
  Report Type: Spontaneous
  Country: US (occurrence: US)
  Receive Date: 20160902
  Receipt Date: 20160902
  Transmission Date: 20161109
  Serious: No
  Sender: FDA-Public Use
  Company Number: US-ASTRAZENECA-2016SE91012

PATIENT
  Sex: Male
  Weight: 86.2 kg

DRUGS (3)
  1. PERCOCET [Concomitant]
     Active Substance: ACETAMINOPHEN\OXYCODONE HYDROCHLORIDE
     Indication: PAIN
  2. XANAFLEX [Concomitant]
     Indication: PAIN
  3. MOVANTIK [Suspect]
     Active Substance: NALOXEGOL OXALATE
     Indication: CONSTIPATION
     Route: 048

REACTIONS (4)
  - Flatulence [Recovered/Resolved]
  - Off label use [Not Recovered/Not Resolved]
  - Muscle spasms [Recovered/Resolved]
  - Intentional product misuse [Recovered/Resolved]
